FAERS Safety Report 10960101 (Version 1)
Quarter: 2015Q1

REPORT INFORMATION
  Report Type: Spontaneous
  Country: US (occurrence: None)
  Receive Date: 20150325
  Receipt Date: 20150325
  Transmission Date: 20150721
  Serious: Yes (Other)
  Sender: FDA-Public Use
  Company Number: 3004763499-2015-00002

PATIENT
  Sex: Female

DRUGS (1)
  1. HIBICLENS [Suspect]
     Active Substance: CHLORHEXIDINE GLUCONATE
     Indication: THERAPEUTIC SKIN CARE TOPICAL
     Route: 061
     Dates: start: 20140522

REACTIONS (4)
  - Chemical injury [None]
  - Genital burning sensation [None]
  - Burns third degree [None]
  - Application site burn [None]

NARRATIVE: CASE EVENT DATE: 20140522
